FAERS Safety Report 19739645 (Version 7)
Quarter: 2021Q3

REPORT INFORMATION
  Report Type: Report from Study
  Country: IN (occurrence: IN)
  Receive Date: 20210823
  Receipt Date: 20210909
  Transmission Date: 20211014
  Serious: Yes (Hospitalization, Other)
  Sender: FDA-Public Use
  Company Number: IN-ASTRAZENECA-2021A009101

PATIENT
  Age: 14616 Day
  Sex: Female

DRUGS (69)
  1. DURVALUMAB. [Suspect]
     Active Substance: DURVALUMAB
     Indication: BILE DUCT CANCER
     Route: 042
     Dates: start: 20201202, end: 20201202
  2. DURVALUMAB. [Suspect]
     Active Substance: DURVALUMAB
     Indication: BILE DUCT CANCER
     Route: 042
     Dates: start: 20201223, end: 20201223
  3. DURVALUMAB. [Suspect]
     Active Substance: DURVALUMAB
     Indication: BILE DUCT CANCER
     Route: 042
     Dates: start: 20210128, end: 20210128
  4. DURVALUMAB. [Suspect]
     Active Substance: DURVALUMAB
     Indication: BILE DUCT CANCER
     Route: 042
     Dates: start: 20210223, end: 20210223
  5. PANTOPRAZOLE [Concomitant]
     Active Substance: PANTOPRAZOLE
     Indication: ANTACID THERAPY
     Route: 048
     Dates: start: 20201014
  6. DEXAMETHASONE. [Concomitant]
     Active Substance: DEXAMETHASONE
     Indication: PREMEDICATION
     Route: 048
     Dates: start: 20201224, end: 20201226
  7. OLANZIPINE [Concomitant]
     Active Substance: OLANZAPINE
     Indication: PROPHYLAXIS OF NAUSEA AND VOMITING
     Route: 048
     Dates: start: 20201223, end: 20201226
  8. INJ MAGNESIUM SULPHATE [Concomitant]
     Indication: HYPOMAGNESAEMIA
     Dosage: 4.0ML ONCE/SINGLE ADMINISTRATION
     Route: 042
     Dates: start: 20201223, end: 20201223
  9. LORAZEPAN [Concomitant]
     Active Substance: LORAZEPAM
     Indication: CHEMOTHERAPY SIDE EFFECT PROPHYLAXIS
     Route: 048
     Dates: start: 20201223, end: 20201223
  10. CISPLATIN. [Suspect]
     Active Substance: CISPLATIN
     Indication: BILE DUCT CANCER
     Dosage: 25 MG/M2 (EACH ADMINISTERED ON DAYS 1 AND 8 Q3W) UP TO 8 CYCLES
     Route: 042
     Dates: start: 20201201, end: 20201202
  11. CISPLATIN. [Suspect]
     Active Substance: CISPLATIN
     Indication: BILE DUCT CANCER
     Dosage: 25 MG/M2 (EACH ADMINISTERED ON DAYS 1 AND 8 Q3W) UP TO 8 CYCLES
     Route: 042
     Dates: start: 20201223, end: 20201223
  12. CISPLATIN. [Suspect]
     Active Substance: CISPLATIN
     Indication: BILE DUCT CANCER
     Dosage: 25 MG/M2 (EACH ADMINISTERED ON DAYS 1 AND 8 Q3W) UP TO 8 CYCLES
     Route: 042
     Dates: start: 20210129, end: 20210129
  13. APREPITANT. [Concomitant]
     Active Substance: APREPITANT
     Indication: PROPHYLAXIS OF NAUSEA AND VOMITING
     Dosage: 125.0MG ONCE/SINGLE ADMINISTRATION
     Route: 048
     Dates: start: 20210101, end: 20210101
  14. DEXAMETHASONE. [Concomitant]
     Active Substance: DEXAMETHASONE
     Indication: CHEMOTHERAPY SIDE EFFECT PROPHYLAXIS
     Dosage: 4.0MG ONCE/SINGLE ADMINISTRATION
     Route: 048
     Dates: start: 20210102, end: 20210104
  15. DEXAMETHASONE. [Concomitant]
     Active Substance: DEXAMETHASONE
     Indication: PREMEDICATION
     Dosage: 4.0MG ONCE/SINGLE ADMINISTRATION
     Route: 048
     Dates: start: 20210102, end: 20210104
  16. INJECTION AMIKACIN [Concomitant]
     Indication: PRODUCT PACKAGING DIFFICULT TO OPEN
     Route: 042
     Dates: start: 20210115, end: 20210117
  17. PANTAPRAZOLE [Concomitant]
     Active Substance: PANTOPRAZOLE SODIUM
     Indication: HYPERCHLORHYDRIA
     Route: 048
     Dates: start: 20210115, end: 20210118
  18. HEXADIENE MOUTHWASH [Concomitant]
     Indication: NONINFECTIVE GINGIVITIS
     Route: 048
     Dates: start: 20210115, end: 20210115
  19. DURVALUMAB. [Suspect]
     Active Substance: DURVALUMAB
     Indication: BILE DUCT CANCER
     Route: 042
     Dates: start: 20201105, end: 20201105
  20. CISPLATIN. [Suspect]
     Active Substance: CISPLATIN
     Indication: BILE DUCT CANCER
     Dosage: 25 MG/M2 (EACH ADMINISTERED ON DAYS 1 AND 8 Q3W) UP TO 8 CYCLES
     Route: 042
     Dates: start: 20201112, end: 20201113
  21. GEMCITABINE. [Suspect]
     Active Substance: GEMCITABINE
     Indication: BILE DUCT CANCER
     Dosage: 1000 MG/M2 (EACH ADMINISTERED ON DAYS 1 AND 8 Q3W) UP TO 8 CYCLES
     Route: 042
     Dates: start: 20201105, end: 20201105
  22. GEMCITABINE. [Suspect]
     Active Substance: GEMCITABINE
     Indication: BILE DUCT CANCER
     Dosage: 1000 MG/M2 (EACH ADMINISTERED ON DAYS 1 AND 8 Q3W) UP TO 8 CYCLES
     Route: 042
     Dates: start: 20201223, end: 20201223
  23. GEMCITABINE. [Suspect]
     Active Substance: GEMCITABINE
     Indication: BILE DUCT CANCER
     Dosage: 1000 MG/M2 (EACH ADMINISTERED ON DAYS 1 AND 8 Q3W) UP TO 8 CYCLES
     Route: 042
     Dates: start: 20210101, end: 20210101
  24. GEMCITABINE. [Suspect]
     Active Substance: GEMCITABINE
     Indication: BILE DUCT CANCER
     Dosage: 1000 MG/M2 (EACH ADMINISTERED ON DAYS 1 AND 8 Q3W) UP TO 8 CYCLES
     Route: 042
     Dates: start: 20210223, end: 20210223
  25. HEXIDINE MOUTHWASH [Concomitant]
     Indication: NONINFECTIVE GINGIVITIS
     Route: 002
     Dates: start: 20210115, end: 20210118
  26. APREPITANT. [Concomitant]
     Active Substance: APREPITANT
     Indication: CHEMOTHERAPY SIDE EFFECT PROPHYLAXIS
     Dosage: 80.0MG ONCE/SINGLE ADMINISTRATION
     Route: 048
     Dates: start: 20210102, end: 20210103
  27. APREPITANT. [Concomitant]
     Active Substance: APREPITANT
     Indication: PROPHYLAXIS OF NAUSEA AND VOMITING
     Dosage: 80.0MG ONCE/SINGLE ADMINISTRATION
     Route: 048
     Dates: start: 20210102, end: 20210103
  28. PANTAPRAZOLE [Concomitant]
     Active Substance: PANTOPRAZOLE SODIUM
     Indication: ANTACID THERAPY
     Route: 048
     Dates: start: 20210115, end: 20210118
  29. INJ MAGNESIUM SULPHATE [Concomitant]
     Indication: HYPOMAGNESAEMIA
     Dosage: 2.0ML ONCE/SINGLE ADMINISTRATION
     Route: 042
     Dates: start: 20210101, end: 20210101
  30. INJ MAGNESIUM SULPHATE [Concomitant]
     Indication: PROPHYLAXIS OF NAUSEA AND VOMITING
     Dosage: 2.0ML ONCE/SINGLE ADMINISTRATION
     Route: 042
     Dates: start: 20210101, end: 20210101
  31. INJ DEXAMETHASONE [Concomitant]
     Indication: PROPHYLAXIS OF NAUSEA AND VOMITING
     Dosage: 8.0MG ONCE/SINGLE ADMINISTRATION
     Route: 042
     Dates: start: 20201223, end: 20201223
  32. INJ PALNESETRON [Concomitant]
     Indication: PROPHYLAXIS OF NAUSEA AND VOMITING
     Dosage: 0.25MG ONCE/SINGLE ADMINISTRATION
     Route: 042
     Dates: start: 20210101, end: 20210101
  33. ONDANSETRON [Concomitant]
     Active Substance: ONDANSETRON
     Indication: NAUSEA
     Route: 048
     Dates: start: 20201014
  34. APREPITANT. [Concomitant]
     Active Substance: APREPITANT
     Indication: PREMEDICATION
     Dosage: 125.0MG ONCE/SINGLE ADMINISTRATION
     Route: 048
     Dates: start: 20201223, end: 20201223
  35. APREPITANT. [Concomitant]
     Active Substance: APREPITANT
     Indication: PREMEDICATION
     Dosage: 125.0MG ONCE/SINGLE ADMINISTRATION
     Route: 048
     Dates: start: 20210101, end: 20210101
  36. PERINORM [Concomitant]
     Active Substance: METOCLOPRAMIDE HYDROCHLORIDE
     Indication: NAUSEA
     Route: 048
     Dates: start: 20210112, end: 20210118
  37. OLANZIPINE [Concomitant]
     Active Substance: OLANZAPINE
     Indication: CHEMOTHERAPY SIDE EFFECT PROPHYLAXIS
     Route: 048
     Dates: start: 20210101, end: 20210104
  38. CISPLATIN. [Suspect]
     Active Substance: CISPLATIN
     Indication: BILE DUCT CANCER
     Dosage: 25 MG/M2 (EACH ADMINISTERED ON DAYS 1 AND 8 Q3W) UP TO 8 CYCLES
     Route: 042
     Dates: start: 20210101, end: 20210101
  39. CISPLATIN. [Suspect]
     Active Substance: CISPLATIN
     Indication: BILE DUCT CANCER
     Dosage: 25 MG/M2 (EACH ADMINISTERED ON DAYS 1 AND 8 Q3W) UP TO 8 CYCLES
     Route: 042
     Dates: start: 20210223, end: 20210223
  40. GEMCITABINE. [Suspect]
     Active Substance: GEMCITABINE
     Indication: BILE DUCT CANCER
     Dosage: 1000 MG/M2 (EACH ADMINISTERED ON DAYS 1 AND 8 Q3W) UP TO 8 CYCLES
     Route: 042
     Dates: start: 20201112, end: 20201112
  41. GEMCITABINE. [Suspect]
     Active Substance: GEMCITABINE
     Indication: BILE DUCT CANCER
     Dosage: 1000 MG/M2 (EACH ADMINISTERED ON DAYS 1 AND 8 Q3W) UP TO 8 CYCLES
     Route: 042
     Dates: start: 20201212, end: 20201212
  42. APREPITANT. [Concomitant]
     Active Substance: APREPITANT
     Indication: CHEMOTHERAPY SIDE EFFECT PROPHYLAXIS
     Dosage: 80.0MG ONCE/SINGLE ADMINISTRATION
     Route: 048
     Dates: start: 20201224, end: 20201225
  43. APREPITANT. [Concomitant]
     Active Substance: APREPITANT
     Indication: PREMEDICATION
     Dosage: 80.0MG ONCE/SINGLE ADMINISTRATION
     Route: 048
     Dates: start: 20210102, end: 20210103
  44. DEXAMETHASONE. [Concomitant]
     Active Substance: DEXAMETHASONE
     Indication: PROPHYLAXIS OF NAUSEA AND VOMITING
     Dosage: 4.0MG ONCE/SINGLE ADMINISTRATION
     Route: 048
     Dates: start: 20210102, end: 20210104
  45. INJ MAGNESIUM SULPHATE [Concomitant]
     Indication: PROPHYLAXIS OF NAUSEA AND VOMITING
     Dosage: 4.0ML ONCE/SINGLE ADMINISTRATION
     Route: 042
     Dates: start: 20201223, end: 20201223
  46. INJ DEXAMETHASONE [Concomitant]
     Indication: PROPHYLAXIS OF NAUSEA AND VOMITING
     Dosage: 8.0MG ONCE/SINGLE ADMINISTRATION
     Route: 042
     Dates: start: 20210101, end: 20210101
  47. INJ PALNESETRON [Concomitant]
     Indication: PROPHYLAXIS OF NAUSEA AND VOMITING
     Dosage: 0.25MG ONCE/SINGLE ADMINISTRATION
     Route: 042
     Dates: start: 20201223, end: 20201223
  48. DOMSTAL [Concomitant]
     Indication: VOMITING
     Route: 048
     Dates: start: 20201223, end: 20201223
  49. CISPLATIN. [Suspect]
     Active Substance: CISPLATIN
     Indication: BILE DUCT CANCER
     Dosage: 25 MG/M2 (EACH ADMINISTERED ON DAYS 1 AND 8 Q3W) UP TO 8 CYCLES
     Route: 042
     Dates: start: 20201209, end: 20201210
  50. APREPITANT. [Concomitant]
     Active Substance: APREPITANT
     Indication: CHEMOTHERAPY SIDE EFFECT PROPHYLAXIS
     Dosage: 125.0MG ONCE/SINGLE ADMINISTRATION
     Route: 048
     Dates: start: 20201223, end: 20201223
  51. APREPITANT. [Concomitant]
     Active Substance: APREPITANT
     Indication: PROPHYLAXIS OF NAUSEA AND VOMITING
     Dosage: 80.0MG ONCE/SINGLE ADMINISTRATION
     Route: 048
     Dates: start: 20201224, end: 20201225
  52. DOMPERIDONE [Concomitant]
     Active Substance: DOMPERIDONE
     Indication: PREMEDICATION
     Dosage: 10.0MG AS REQUIRED
     Route: 048
     Dates: start: 20201105
  53. CISPLATIN. [Suspect]
     Active Substance: CISPLATIN
     Indication: BILE DUCT CANCER
     Dosage: 25 MG/M2 (EACH ADMINISTERED ON DAYS 1 AND 8 Q3W) UP TO 8 CYCLES
     Route: 042
     Dates: start: 20201105, end: 20201105
  54. GEMCITABINE. [Suspect]
     Active Substance: GEMCITABINE
     Indication: BILE DUCT CANCER
     Dosage: 1000 MG/M2 (EACH ADMINISTERED ON DAYS 1 AND 8 Q3W) UP TO 8 CYCLES
     Route: 042
     Dates: start: 20210129, end: 20210129
  55. PANTOPRAZOLE [Concomitant]
     Active Substance: PANTOPRAZOLE
     Indication: HYPERCHLORHYDRIA
     Route: 048
     Dates: start: 20201014
  56. APREPITANT. [Concomitant]
     Active Substance: APREPITANT
     Indication: PROPHYLAXIS OF NAUSEA AND VOMITING
     Dosage: 125.0MG ONCE/SINGLE ADMINISTRATION
     Route: 048
     Dates: start: 20201223, end: 20201223
  57. APREPITANT. [Concomitant]
     Active Substance: APREPITANT
     Indication: PREMEDICATION
     Dosage: 80.0MG ONCE/SINGLE ADMINISTRATION
     Route: 048
     Dates: start: 20201224, end: 20201225
  58. DEXAMETHASONE. [Concomitant]
     Active Substance: DEXAMETHASONE
     Indication: CHEMOTHERAPY SIDE EFFECT PROPHYLAXIS
     Route: 048
     Dates: start: 20201224, end: 20201226
  59. PAN [Concomitant]
     Indication: PROPHYLAXIS
     Route: 042
     Dates: start: 20210115, end: 20210118
  60. OLANZIPINE [Concomitant]
     Active Substance: OLANZAPINE
     Indication: CHEMOTHERAPY SIDE EFFECT PROPHYLAXIS
     Route: 048
     Dates: start: 20201223, end: 20201226
  61. OLANZIPINE [Concomitant]
     Active Substance: OLANZAPINE
     Indication: PROPHYLAXIS OF NAUSEA AND VOMITING
     Route: 048
     Dates: start: 20210101, end: 20210104
  62. INJ POTASSIUM CHLORIDE [Concomitant]
     Indication: PROPHYLAXIS OF NAUSEA AND VOMITING
     Dosage: 10.0ML ONCE/SINGLE ADMINISTRATION
     Route: 042
     Dates: start: 20201223, end: 20201223
  63. INJ POTASSIUM CHLORIDE [Concomitant]
     Indication: PROPHYLAXIS OF NAUSEA AND VOMITING
     Dosage: 10.0ML ONCE/SINGLE ADMINISTRATION
     Route: 042
     Dates: start: 20210101, end: 20210101
  64. GEMCITABINE. [Suspect]
     Active Substance: GEMCITABINE
     Indication: BILE DUCT CANCER
     Dosage: 1000 MG/M2 (EACH ADMINISTERED ON DAYS 1 AND 8 Q3W) UP TO 8 CYCLES
     Route: 042
     Dates: start: 20201201, end: 20201201
  65. HEXIDINE MOUTHWASH [Concomitant]
     Indication: DENTAL DISORDER PROPHYLAXIS
     Route: 002
     Dates: start: 20210115, end: 20210118
  66. APREPITANT. [Concomitant]
     Active Substance: APREPITANT
     Indication: CHEMOTHERAPY SIDE EFFECT PROPHYLAXIS
     Dosage: 125.0MG ONCE/SINGLE ADMINISTRATION
     Route: 048
     Dates: start: 20210101, end: 20210101
  67. DEXAMETHASONE. [Concomitant]
     Active Substance: DEXAMETHASONE
     Indication: PROPHYLAXIS OF NAUSEA AND VOMITING
     Route: 048
     Dates: start: 20201224, end: 20201226
  68. PERINORM [Concomitant]
     Active Substance: METOCLOPRAMIDE HYDROCHLORIDE
     Indication: ANTIEMETIC SUPPORTIVE CARE
     Route: 048
     Dates: start: 20210112, end: 20210118
  69. PERINORM [Concomitant]
     Active Substance: METOCLOPRAMIDE HYDROCHLORIDE
     Indication: NAUSEA
     Route: 048
     Dates: start: 20210112, end: 20210118

REACTIONS (7)
  - Anaemia [Recovered/Resolved]
  - Pancreatitis [Recovered/Resolved]
  - Hypomagnesaemia [Recovered/Resolved]
  - Vomiting [Recovered/Resolved]
  - Neutropenia [Recovered/Resolved]
  - Nausea [Recovered/Resolved]
  - Thrombocytopenia [Recovered/Resolved]

NARRATIVE: CASE EVENT DATE: 20210114
